FAERS Safety Report 5200099-9 (Version None)
Quarter: 2007Q1

REPORT INFORMATION
  Report Type: 
  Country: None (occurrence: None)
  Receive Date: 20070105
  Receipt Date: 20061227
  Transmission Date: 20070707
  Serious: Yes (Hospitalization)
  Sender: FDA-Public Use
  Company Number: JP-JPN-A200604983

PATIENT
  Age: 79 Year
  Sex: Male

DRUGS (6)
  1. MODACIN [Suspect]
     Indication: DUODENAL ULCER PERFORATION
     Dosage: 1G THREE TIMES PER DAY
     Route: 042
     Dates: start: 20061117, end: 20061120
  2. OMEPRAL [Suspect]
     Indication: ULCER
     Dosage: 20MG TWICE PER DAY
     Route: 042
     Dates: start: 20061117, end: 20061120
  3. VASOLAN [Concomitant]
     Indication: ARRHYTHMIA SUPRAVENTRICULAR
     Dosage: 5MG TWICE PER DAY
     Route: 042
     Dates: start: 20061118, end: 20061120
  4. SOLCOSERYL [Concomitant]
     Indication: ULCER
     Dosage: 4ML PER DAY
     Route: 042
     Dates: start: 20061117, end: 20061120
  5. PREDONINE [Concomitant]
     Indication: RHEUMATOID ARTHRITIS
     Dosage: 10MG PER DAY
     Route: 042
     Dates: start: 20061117, end: 20061122
  6. PREDONINE [Concomitant]
     Dosage: 10MG PER DAY
     Route: 048
     Dates: start: 20061123

REACTIONS (9)
  - ALANINE AMINOTRANSFERASE INCREASED [None]
  - ALBUMIN GLOBULIN RATIO DECREASED [None]
  - ASPARTATE AMINOTRANSFERASE INCREASED [None]
  - BLOOD ALBUMIN DECREASED [None]
  - BLOOD ALKALINE PHOSPHATASE INCREASED [None]
  - GAMMA-GLUTAMYLTRANSFERASE INCREASED [None]
  - HYPERBILIRUBINAEMIA [None]
  - LYMPHOCYTE STIMULATION TEST POSITIVE [None]
  - PROTEIN TOTAL DECREASED [None]
